FAERS Safety Report 7726796-9 (Version None)
Quarter: 2011Q3

REPORT INFORMATION
  Report Type: 
  Country: None (occurrence: None)
  Receive Date: 20110902
  Receipt Date: 20110826
  Transmission Date: 20111222
  Serious: Yes (Hospitalization, Disabling)
  Sender: FDA-Public Use
  Company Number: JP-GLAXOSMITHKLINE-B0710398A

PATIENT
  Sex: Female
  Weight: 42 kg

DRUGS (7)
  1. XELODA [Suspect]
     Dosage: 2400MG PER DAY
     Route: 048
     Dates: start: 20091209, end: 20091219
  2. LOXONIN [Concomitant]
     Indication: HYPOAESTHESIA
     Route: 048
  3. XELODA [Suspect]
     Dosage: 2400MG PER DAY
     Route: 048
     Dates: start: 20100119, end: 20100413
  4. TYKERB [Suspect]
     Indication: BREAST CANCER
     Dosage: 1250MG PER DAY
     Route: 048
     Dates: start: 20091209, end: 20091219
  5. SELBEX [Concomitant]
     Indication: HYPOAESTHESIA
     Route: 048
  6. TYKERB [Suspect]
     Dosage: 1250MG PER DAY
     Route: 048
     Dates: start: 20100119, end: 20100413
  7. PYDOXAL [Concomitant]
     Indication: PALMAR-PLANTAR ERYTHRODYSAESTHESIA SYNDROME
     Route: 048
     Dates: start: 20091208, end: 20100413

REACTIONS (3)
  - BLOOD CREATININE INCREASED [None]
  - CARDIAC DISORDER [None]
  - RENAL IMPAIRMENT [None]
